FAERS Safety Report 12779199 (Version 2)
Quarter: 2016Q4

REPORT INFORMATION
  Report Type: Spontaneous
  Country: US (occurrence: US)
  Receive Date: 20160926
  Receipt Date: 20161028
  Transmission Date: 20170207
  Serious: No
  Sender: FDA-Public Use
  Company Number: US-JAZZ-2016-US-011181

PATIENT
  Sex: Female

DRUGS (23)
  1. XYREM [Suspect]
     Active Substance: SODIUM OXYBATE
     Dosage: 6 G, BID
     Route: 048
     Dates: start: 200801, end: 2010
  2. MYRBETRIQ [Concomitant]
     Active Substance: MIRABEGRON
  3. NIFEDIPINE. [Concomitant]
     Active Substance: NIFEDIPINE
  4. XYREM [Suspect]
     Active Substance: SODIUM OXYBATE
     Dosage: 4.5 G, BID
     Route: 048
     Dates: start: 201508, end: 2016
  5. DICLOFENAC POTASSIUM. [Concomitant]
     Active Substance: DICLOFENAC POTASSIUM
  6. LUNESTA [Concomitant]
     Active Substance: ESZOPICLONE
  7. IBUPROFEN. [Concomitant]
     Active Substance: IBUPROFEN
  8. MELATONIN [Concomitant]
     Active Substance: MELATONIN
  9. METFORMIN HCL [Concomitant]
     Active Substance: METFORMIN HYDROCHLORIDE
  10. LEVOTHYROXINE. [Concomitant]
     Active Substance: LEVOTHYROXINE
  11. XYREM [Suspect]
     Active Substance: SODIUM OXYBATE
     Indication: SLEEP DISORDER
     Dosage: 0.75 G, BID
     Route: 048
     Dates: start: 200509, end: 2005
  12. XYREM [Suspect]
     Active Substance: SODIUM OXYBATE
     Dosage: 5 G, BID
     Route: 048
     Dates: start: 201605
  13. AMLODIPINE BESILATE [Concomitant]
     Active Substance: AMLODIPINE BESYLATE
  14. XYREM [Suspect]
     Active Substance: SODIUM OXYBATE
     Dosage: 4 G, BID
     Route: 048
     Dates: start: 201507, end: 2015
  15. VITAMIN D3 [Concomitant]
     Active Substance: CHOLECALCIFEROL
  16. VESICARE [Concomitant]
     Active Substance: SOLIFENACIN SUCCINATE
  17. DEXTROAMPHETAMINE. [Concomitant]
     Active Substance: DEXTROAMPHETAMINE
  18. OXYBUTYNIN CHLORIDE. [Concomitant]
     Active Substance: OXYBUTYNIN CHLORIDE
  19. XYREM [Suspect]
     Active Substance: SODIUM OXYBATE
     Dosage: DOSE ADJUSTMENTS
     Route: 048
     Dates: start: 200510, end: 200712
  20. ASPIRIN. [Concomitant]
     Active Substance: ASPIRIN
  21. ATORVASTATIN [Concomitant]
     Active Substance: ATORVASTATIN
  22. NYSTATIN. [Concomitant]
     Active Substance: NYSTATIN
  23. LORAZEPAM. [Concomitant]
     Active Substance: LORAZEPAM

REACTIONS (1)
  - Raynaud^s phenomenon [Not Recovered/Not Resolved]
